FAERS Safety Report 4802819-1 (Version None)
Quarter: 2005Q4

REPORT INFORMATION
  Report Type: 
  Country: None (occurrence: None)
  Receive Date: 20051013
  Receipt Date: 20050913
  Transmission Date: 20060501
  Serious: Yes (Hospitalization)
  Sender: FDA-Public Use
  Company Number: 200252

PATIENT
  Age: 27 Year
  Sex: Male
  Weight: 70 kg

DRUGS (1)
  1. AVONEX (INTERFERON BETA) [Suspect]
     Indication: MULTIPLE SCLEROSIS
     Dosage: 30 UG;QW;IM
     Route: 042
     Dates: start: 20020601, end: 20040301

REACTIONS (4)
  - KIDNEY FIBROSIS [None]
  - NEPHROSCLEROSIS [None]
  - NEPHROTIC SYNDROME [None]
  - ORAL CANDIDIASIS [None]
